FAERS Safety Report 20570696 (Version 1)
Quarter: 2022Q1

REPORT INFORMATION
  Report Type: Report from Study
  Country: US (occurrence: US)
  Receive Date: 20220309
  Receipt Date: 20220309
  Transmission Date: 20220423
  Serious: No
  Sender: FDA-Public Use
  Company Number: US-NOVARTISTESTPH-NVSC2022US054707

PATIENT
  Age: 79 Year
  Sex: Female

DRUGS (2)
  1. COSENTYX [Suspect]
     Active Substance: SECUKINUMAB
     Indication: Psoriasis
     Dosage: 300 MG, Q WEEK FOR FIVE WEEKS AND THEN Q MONTH
     Route: 058
     Dates: start: 20220216
  2. COSENTYX [Suspect]
     Active Substance: SECUKINUMAB
     Dosage: 300 MG, Q WEEK FOR FIVE WEEKS AND THEN Q MONTH
     Route: 058
     Dates: start: 20220223

REACTIONS (2)
  - Psoriasis [Unknown]
  - Anxiety [Unknown]

NARRATIVE: CASE EVENT DATE: 20220307
